FAERS Safety Report 6170684-9 (Version None)
Quarter: 2009Q2

REPORT INFORMATION
  Report Type: 
  Country: None (occurrence: None)
  Receive Date: 20090428
  Receipt Date: 20090417
  Transmission Date: 20091009
  Serious: Yes (Hospitalization, Other)
  Sender: FDA-Public Use
  Company Number: ES-ELI_LILLY_AND_COMPANY-ES200904004024

PATIENT
  Age: 86 Year
  Sex: Male

DRUGS (4)
  1. FORTEO [Suspect]
     Indication: OSTEOPOROSIS
     Dosage: 20 UG, DAILY (1/D)
     Route: 058
     Dates: start: 20080401
  2. IRON [Concomitant]
     Indication: ANAEMIA
  3. SEGURIL [Concomitant]
     Indication: CARDIAC DISORDER
  4. EPLERENONE [Concomitant]

REACTIONS (4)
  - FALL [None]
  - INFLAMMATION [None]
  - OEDEMA [None]
  - TENDON INJURY [None]
